FAERS Safety Report 11302105 (Version 1)
Quarter: 2015Q3

REPORT INFORMATION
  Report Type: Spontaneous
  Country: US (occurrence: None)
  Receive Date: 20150723
  Receipt Date: 20150723
  Transmission Date: 20151125
  Serious: Yes (Disabling)
  Sender: FDA-Public Use
  Company Number: None

PATIENT
  Age: 71 Year
  Sex: Female
  Weight: 77.11 kg

DRUGS (16)
  1. TYLENOL WITH CODEINE [Concomitant]
     Active Substance: ACETAMINOPHEN\CODEINE PHOSPHATE
  2. PEG [Concomitant]
     Active Substance: POLYETHYLENE GLYCOLS
  3. CLONIDINE. [Concomitant]
     Active Substance: CLONIDINE
  4. BENEFIBER [Concomitant]
     Active Substance: STARCH, WHEAT
  5. DOCQLACE [Suspect]
     Active Substance: DOCUSATE SODIUM
     Indication: GASTROINTESTINAL FUNGAL INFECTION
     Dosage: 270 3XDAILY BY MOUTH
     Route: 048
     Dates: start: 20141119, end: 20150706
  6. FIORICET [Concomitant]
     Active Substance: ACETAMINOPHEN\BUTALBITAL\CAFFEINE
  7. VITAMIN D3 [Concomitant]
     Active Substance: CHOLECALCIFEROL
  8. LOMOTIL [Concomitant]
     Active Substance: ATROPINE SULFATE\DIPHENOXYLATE HYDROCHLORIDE
  9. CENTRUM SILVER [Concomitant]
     Active Substance: VITAMINS
  10. SIMETHICONE (DIMETHICONE) [Concomitant]
     Active Substance: DIMETHICONE
  11. FLUCONAZOLE. [Concomitant]
     Active Substance: FLUCONAZOLE
  12. SALISAN [Concomitant]
  13. DIAZAPAM 10 MG GEL [Concomitant]
     Active Substance: DIAZEPAM
  14. FOLIC ACID. [Concomitant]
     Active Substance: FOLIC ACID
  15. NYSTATIN. [Concomitant]
     Active Substance: NYSTATIN
  16. KETOCONAZOLE. [Concomitant]
     Active Substance: KETOCONAZOLE

REACTIONS (1)
  - Oral fungal infection [None]

NARRATIVE: CASE EVENT DATE: 20140704
